FAERS Safety Report 18706301 (Version 1)
Quarter: 2021Q1

REPORT INFORMATION
  Report Type: Spontaneous
  Country: US (occurrence: US)
  Receive Date: 20210105
  Receipt Date: 20210105
  Transmission Date: 20210419
  Serious: Yes (Death, Hospitalization)
  Sender: FDA-Public Use
  Company Number: None

PATIENT
  Age: 72 Year
  Sex: Male
  Weight: 103 kg

DRUGS (1)
  1. ENOXAPARIN (ENOXAPARIN 100MG/ML INJ, SYRINGE, 1ML) [Suspect]
     Active Substance: ENOXAPARIN SODIUM
     Indication: DEEP VEIN THROMBOSIS
     Route: 058
     Dates: start: 20201022, end: 20201110

REACTIONS (9)
  - Headache [None]
  - Asthenia [None]
  - Haemoglobin decreased [None]
  - Hypotension [None]
  - Bowel movement irregularity [None]
  - Haematochezia [None]
  - Haemorrhage [None]
  - Haemorrhage intracranial [None]
  - Tachycardia [None]

NARRATIVE: CASE EVENT DATE: 20201110
